FAERS Safety Report 4994166-2 (Version None)
Quarter: 2006Q2

REPORT INFORMATION
  Report Type: 
  Country: None (occurrence: None)
  Receive Date: 20060503
  Receipt Date: 20060420
  Transmission Date: 20061013
  Serious: Yes (Hospitalization, Other)
  Sender: FDA-Public Use
  Company Number: 2006055943

PATIENT
  Age: 65 Year
  Sex: Male

DRUGS (2)
  1. VIAGRA [Suspect]
     Indication: ILL-DEFINED DISORDER
     Dosage: 200 MG, ORAL
     Route: 048
     Dates: start: 20060419, end: 20060420
  2. NITROGLYCERIN [Suspect]
     Indication: ANGINA PECTORIS
     Dates: start: 20060420, end: 20060420

REACTIONS (4)
  - CONTRAINDICATION TO MEDICAL TREATMENT [None]
  - MALAISE [None]
  - SHOCK [None]
  - VASCULAR OCCLUSION [None]
